FAERS Safety Report 19772515 (Version 1)
Quarter: 2021Q3

REPORT INFORMATION
  Report Type: Spontaneous
  Country: JP (occurrence: JP)
  Receive Date: 20210901
  Receipt Date: 20210901
  Transmission Date: 20211014
  Serious: Yes (Life-Threatening, Hospitalization)
  Sender: FDA-Public Use
  Company Number: JP-PFIZER INC-2021623752

PATIENT
  Age: 83 Year
  Sex: Male

DRUGS (2)
  1. METHYCOBAL [Concomitant]
     Active Substance: METHYLCOBALAMIN
     Dosage: 0.5 MG, 2X/DAY
     Route: 048
     Dates: start: 20210521
  2. LYRICA [Suspect]
     Active Substance: PREGABALIN
     Dosage: 25 MG, 2X/DAY
     Route: 048
     Dates: start: 20210521

REACTIONS (1)
  - Swollen tongue [Recovered/Resolved]

NARRATIVE: CASE EVENT DATE: 20210524
